FAERS Safety Report 8481531-4 (Version None)
Quarter: 2012Q3

REPORT INFORMATION
  Report Type: 
  Country: None (occurrence: None)
  Receive Date: 20120702
  Receipt Date: 20120620
  Transmission Date: 20120928
  Serious: Yes (Hospitalization)
  Sender: FDA-Public Use
  Company Number: CA-ASTRAZENECA-2012SE42139

PATIENT
  Age: 66 Year
  Sex: Female

DRUGS (5)
  1. DAXAS [Concomitant]
  2. FAST ACTING BRONCHODILATORS [Concomitant]
  3. SPIRIVA [Concomitant]
  4. SYMBICORT [Suspect]
     Indication: CHRONIC OBSTRUCTIVE PULMONARY DISEASE
     Dosage: EVERY EVENING
     Route: 055
  5. SYMBICORT [Suspect]
     Dosage: EVERY MORNING
     Route: 055

REACTIONS (3)
  - DRUG INEFFECTIVE [None]
  - CHRONIC OBSTRUCTIVE PULMONARY DISEASE [None]
  - ACTIVITIES OF DAILY LIVING IMPAIRED [None]
